FAERS Safety Report 4991422-9 (Version None)
Quarter: 2006Q2

REPORT INFORMATION
  Report Type: 
  Country: None (occurrence: None)
  Receive Date: 20060426
  Receipt Date: 20060329
  Transmission Date: 20061013
  Serious: Yes (Hospitalization)
  Sender: FDA-Public Use
  Company Number: WAES 0604USA01836

PATIENT
  Sex: 0

DRUGS (1)
  1. ZOCOR [Suspect]
     Indication: HYPERCHOLESTEROLAEMIA
     Dosage: 5 MG/DAILY PO
     Route: 048

REACTIONS (1)
  - MALIGNANT LYMPHOID NEOPLASM [None]
